FAERS Safety Report 16808570 (Version 1)
Quarter: 2019Q3

REPORT INFORMATION
  Report Type: Spontaneous
  Country: US (occurrence: US)
  Receive Date: 20190724
  Receipt Date: 20190724
  Transmission Date: 20191005
  Serious: No
  Sender: FDA-Public Use
  Company Number: None

PATIENT
  Age: 68 Year
  Sex: Female
  Weight: 70.31 kg

DRUGS (6)
  1. DIGESTIVE ENXZYMES [Concomitant]
  2. APPLE PECTIN [Concomitant]
  3. LEVOXYL [Concomitant]
     Active Substance: LEVOTHYROXINE SODIUM
  4. ARTICHOKE. [Concomitant]
     Active Substance: ARTICHOKE
  5. ROSUVASTATIN 20MG [Suspect]
     Active Substance: ROSUVASTATIN
     Indication: LOW DENSITY LIPOPROTEIN INCREASED
     Dosage: ?          QUANTITY:20 MG MILLIGRAM(S);?
     Route: 048
     Dates: start: 20190218, end: 20190225
  6. D3 SUBLINGUAL [Concomitant]

REACTIONS (5)
  - Fatigue [None]
  - Abdominal distension [None]
  - Rash [None]
  - Malignant melanoma [None]
  - Peripheral swelling [None]

NARRATIVE: CASE EVENT DATE: 20190222
